FAERS Safety Report 10224697 (Version 1)
Quarter: 2014Q2

REPORT INFORMATION
  Report Type: Spontaneous
  Country: BR (occurrence: BR)
  Receive Date: 20140609
  Receipt Date: 20140609
  Transmission Date: 20141212
  Serious: Yes (Other)
  Sender: FDA-Public Use
  Company Number: BR-PFIZER INC-2014153895

PATIENT
  Age: 72 Year
  Sex: Female
  Weight: 67 kg

DRUGS (7)
  1. LIPITOR [Suspect]
     Indication: BLOOD CHOLESTEROL INCREASED
     Dosage: 20 MG, DAILY
     Route: 048
     Dates: start: 2004
  2. CALCIUM [Concomitant]
     Indication: BLOOD CALCIUM DECREASED
     Dosage: 1 DF, DAILY
  3. DAFLON 500 [Concomitant]
     Indication: CARDIOVASCULAR DISORDER
     Dosage: 1 DF, DAILY
     Dates: start: 2011
  4. NATRILIX [Concomitant]
     Indication: BLOOD PRESSURE
     Dosage: 1 DF, 1X/DAY IN THE MORNING
     Dates: start: 201403
  5. NATRILIX [Concomitant]
     Indication: DIURETIC THERAPY
  6. ARADOIS [Concomitant]
     Indication: BLOOD PRESSURE
     Dosage: 1 DF, 2X/DAY
     Dates: start: 2011
  7. NEBILET [Concomitant]
     Indication: HEART RATE
     Dosage: 5 MG, 2X/DAY
     Dates: start: 2011

REACTIONS (3)
  - Cardiac valve disease [Unknown]
  - Blood glucose increased [Unknown]
  - Drug ineffective [Unknown]
